FAERS Safety Report 10364723 (Version 5)
Quarter: 2014Q4

REPORT INFORMATION
  Report Type: Spontaneous
  Country: NO (occurrence: NO)
  Receive Date: 20140806
  Receipt Date: 20141029
  Transmission Date: 20150528
  Serious: Yes (Hospitalization, Other)
  Sender: FDA-Public Use
  Company Number: NO-TEVA-499715USA

PATIENT
  Age: 22 Year
  Sex: Female

DRUGS (8)
  1. TRAMADOL [Concomitant]
     Active Substance: TRAMADOL
  2. ADASUVE [Suspect]
     Active Substance: LOXAPINE
     Indication: AGITATION
     Route: 055
     Dates: start: 2014
  3. CHLORPROMAZINE [Concomitant]
     Active Substance: CHLORPROMAZINE
  4. SINGULAIR [Concomitant]
     Active Substance: MONTELUKAST SODIUM
  5. OXYCONTIN [Concomitant]
     Active Substance: OXYCODONE HYDROCHLORIDE
  6. SINGULAIR [Concomitant]
     Active Substance: MONTELUKAST SODIUM
  7. PARACETAMOL [Concomitant]
     Active Substance: ACETAMINOPHEN
  8. NOZINAN [Concomitant]
     Active Substance: LEVOMEPROMAZINE

REACTIONS (4)
  - Dyspnoea [Recovered/Resolved]
  - Dystonia [Recovered/Resolved]
  - Swollen tongue [Recovered/Resolved]
  - Off label use [Recovered/Resolved]

NARRATIVE: CASE EVENT DATE: 20140719
